FAERS Safety Report 18966960 (Version 1)
Quarter: 2021Q1

REPORT INFORMATION
  Report Type: Report from Study
  Country: NL (occurrence: NL)
  Receive Date: 20210304
  Receipt Date: 20210304
  Transmission Date: 20210420
  Serious: Yes (Other)
  Sender: FDA-Public Use
  Company Number: NL-SUN PHARMACEUTICAL INDUSTRIES LTD-2021R1-282754

PATIENT
  Sex: Female

DRUGS (3)
  1. METHYLPREDNISOLONE. [Suspect]
     Active Substance: METHYLPREDNISOLONE
     Indication: NEURALGIA
     Dosage: 75 MILLIGRAM, QD
     Route: 065
  2. LYRICA [Suspect]
     Active Substance: PREGABALIN
     Indication: NEURALGIA
     Dosage: 75 MILLIGRAM, QD
     Route: 065
  3. TRAMADOL/PARACETAMOL [Suspect]
     Active Substance: ACETAMINOPHEN\TRAMADOL
     Indication: NEURALGIA
     Dosage: 75 MILLIGRAM, QD
     Route: 065

REACTIONS (5)
  - Visual impairment [Recovered/Resolved]
  - Colour blindness [Recovered/Resolved]
  - Eye swelling [Recovered/Resolved]
  - Photopsia [Recovered/Resolved]
  - Burning sensation [Recovered/Resolved]
